FAERS Safety Report 6949803-X (Version None)
Quarter: 2010Q3

REPORT INFORMATION
  Report Type: 
  Country: None (occurrence: None)
  Receive Date: 20100828
  Receipt Date: 20100112
  Transmission Date: 20110219
  Serious: No
  Sender: FDA-Public Use
  Company Number: US-ABBOTT-10P-163-0619601-00

PATIENT
  Age: 73 Year
  Sex: Male
  Weight: 74.91 kg

DRUGS (7)
  1. NIASPAN [Suspect]
     Indication: BLOOD CHOLESTEROL INCREASED
     Dosage: DAILY AT BEDTIME WITH ASPIRIN
     Route: 048
  2. ASPIRIN [Concomitant]
     Indication: PRODUCT USED FOR UNKNOWN INDICATION
     Dosage: 30MIN-1HR PRIOR TO NIASPAN AT BEDTIME
  3. DIOVAN [Concomitant]
     Indication: HYPERTENSION
  4. SYNTHROID [Concomitant]
     Indication: HYPOTHYROIDISM
  5. PRIMIDONE [Concomitant]
     Indication: ESSENTIAL TREMOR
  6. PROPRANOLOL [Concomitant]
     Indication: HYPERTENSION
  7. COUMADIN [Concomitant]
     Indication: ATRIAL FIBRILLATION

REACTIONS (2)
  - BLOOD CHOLESTEROL INCREASED [None]
  - LOW DENSITY LIPOPROTEIN INCREASED [None]
